FAERS Safety Report 18666436 (Version 1)
Quarter: 2020Q4

REPORT INFORMATION
  Report Type: Spontaneous
  Country: US (occurrence: US)
  Receive Date: 20201227
  Receipt Date: 20201227
  Transmission Date: 20210114
  Serious: No
  Sender: FDA-Public Use
  Company Number: US-ASTRAZENECA-2020SF64421

PATIENT
  Age: 66 Year
  Sex: Female

DRUGS (1)
  1. BREZTRI AEROSPHERE [Suspect]
     Active Substance: BUDESONIDE\FORMOTEROL\GLYCOPYRRONIUM
     Indication: EMPHYSEMA
     Dosage: 2 PUFFS TWICE EACH DAY
     Route: 055
     Dates: start: 202010

REACTIONS (2)
  - Lip exfoliation [Not Recovered/Not Resolved]
  - Dyspnoea [Not Recovered/Not Resolved]

NARRATIVE: CASE EVENT DATE: 2020
